FAERS Safety Report 5967744-1 (Version None)
Quarter: 2008Q4

REPORT INFORMATION
  Report Type: 
  Country: None (occurrence: None)
  Receive Date: 20081126
  Receipt Date: 20081118
  Transmission Date: 20090506
  Serious: No
  Sender: FDA-Public Use
  Company Number: JP-JNJFOC-20081103344

PATIENT
  Age: 42 Year
  Sex: Female

DRUGS (1)
  1. DUROTEP MT [Suspect]
     Indication: CERVIX CARCINOMA
     Dosage: CUTS THE 50MCG/HR PATCH IN HALF AND APPLIES IT,AND APPLIES OTHER HALF A DAY LATER.
     Route: 062

REACTIONS (2)
  - NAUSEA [None]
  - WRONG TECHNIQUE IN DRUG USAGE PROCESS [None]
